FAERS Safety Report 5243918-2 (Version None)
Quarter: 2007Q1

REPORT INFORMATION
  Report Type: 
  Country: None (occurrence: None)
  Receive Date: 20070222
  Receipt Date: 20070208
  Transmission Date: 20070707
  Serious: Yes (Other)
  Sender: FDA-Public Use
  Company Number: PHNU2007DE00839

PATIENT
  Sex: Male

DRUGS (1)
  1. CLOZAPINE [Suspect]
     Dosage: 100 MG/DAY
     Route: 048
     Dates: start: 20060101, end: 20060101

REACTIONS (4)
  - ACCIDENTAL EXPOSURE [None]
  - BRONCHOPNEUMONIA [None]
  - DYSPNOEA [None]
  - FATIGUE [None]
